FAERS Safety Report 6316081-4 (Version None)
Quarter: 2009Q3

REPORT INFORMATION
  Report Type: 
  Country: None (occurrence: None)
  Receive Date: 20090820
  Receipt Date: 20090811
  Transmission Date: 20100115
  Serious: Yes (Hospitalization)
  Sender: FDA-Public Use
  Company Number: PHEH2009US09097

PATIENT
  Sex: Male

DRUGS (3)
  1. GLEEVEC [Suspect]
     Dosage: 400 MG
  2. GLEEVEC [Suspect]
     Dosage: 400MG
     Dates: start: 20090811
  3. BENICAR [Concomitant]
     Dosage: UNK

REACTIONS (1)
  - HEART RATE IRREGULAR [None]
